FAERS Safety Report 24669527 (Version 1)
Quarter: 2024Q4

REPORT INFORMATION
  Report Type: Spontaneous
  Country: AR (occurrence: AR)
  Receive Date: 20241127
  Receipt Date: 20241127
  Transmission Date: 20250114
  Serious: Yes (Other)
  Sender: NOVARTIS
  Company Number: AR-002147023-PHHY2011AR58378

PATIENT
  Age: 40 Year
  Sex: Female

DRUGS (9)
  1. OCTREOTIDE [Suspect]
     Active Substance: OCTREOTIDE
     Indication: Ectopic ACTH syndrome
     Dosage: 20 MG, QMO
     Route: 030
  2. OCTREOTIDE [Suspect]
     Active Substance: OCTREOTIDE
  3. OCTREOTIDE [Suspect]
     Active Substance: OCTREOTIDE
  4. KETOCONAZOLE [Suspect]
     Active Substance: KETOCONAZOLE
     Indication: Ectopic ACTH syndrome
     Dosage: 800 MG, QD
     Route: 065
  5. AMINOGLUTETHIMIDE [Suspect]
     Active Substance: AMINOGLUTETHIMIDE
     Indication: Ectopic ACTH syndrome
     Dosage: 1500 MG, QD
     Route: 065
  6. CABERGOLINE [Suspect]
     Active Substance: CABERGOLINE
     Indication: Ectopic ACTH syndrome
     Dosage: 3.5 MG, QW
     Route: 065
  7. HYDROCORTISONE [Concomitant]
     Active Substance: HYDROCORTISONE
     Indication: Product used for unknown indication
     Dosage: UNK
     Route: 065
  8. HYDROCORTISONE [Concomitant]
     Active Substance: HYDROCORTISONE
     Indication: Ectopic ACTH syndrome
  9. FLUDROCORTISONE [Concomitant]
     Active Substance: FLUDROCORTISONE
     Indication: Ectopic ACTH syndrome
     Dosage: UNK
     Route: 065

REACTIONS (1)
  - Adrenal insufficiency [Unknown]
